FAERS Safety Report 21558735 (Version 2)
Quarter: 2022Q4

REPORT INFORMATION
  Report Type: Spontaneous
  Country: US (occurrence: US)
  Receive Date: 20221107
  Receipt Date: 20221213
  Transmission Date: 20230113
  Serious: No
  Sender: FDA-Public Use
  Company Number: US-002147023-NVSC2022US249837

PATIENT
  Age: 2 Year
  Sex: Female

DRUGS (3)
  1. VIJOICE [Suspect]
     Active Substance: ALPELISIB
     Indication: Intracranial mass
     Dosage: 50 MG, QD
     Route: 048
  2. VIJOICE [Suspect]
     Active Substance: ALPELISIB
     Indication: Pulse abnormal
  3. VIJOICE [Suspect]
     Active Substance: ALPELISIB
     Indication: PIK3CA related overgrowth spectrum

REACTIONS (1)
  - Diarrhoea [Recovering/Resolving]
